FAERS Safety Report 20058321 (Version 4)
Quarter: 2021Q4

REPORT INFORMATION
  Report Type: Report from Study
  Country: BR (occurrence: BR)
  Receive Date: 20211111
  Receipt Date: 20211217
  Transmission Date: 20220303
  Serious: Yes (Other)
  Sender: FDA-Public Use
  Company Number: BR-NOVARTISPH-NVSC2021BR248349

PATIENT
  Age: 86 Year
  Sex: Female
  Weight: 70 kg

DRUGS (12)
  1. DEXAMETHASONE SODIUM PHOSPHATE\MOXIFLOXACIN HYDROCHLORIDE [Suspect]
     Active Substance: DEXAMETHASONE SODIUM PHOSPHATE\MOXIFLOXACIN HYDROCHLORIDE
     Indication: Product used for unknown indication
     Dosage: 1 DRP, Q3H (ONE DROP IN THE RIGHT EYE) 15 DAYS AGO
     Route: 047
  2. BROLUCIZUMAB [Suspect]
     Active Substance: BROLUCIZUMAB
     Indication: Age-related macular degeneration
     Dosage: UNK UNK, QMO (ONE APPLICATION, RIGHT EYE)
     Route: 031
     Dates: start: 20211021
  3. MYDRIACYL [Concomitant]
     Active Substance: TROPICAMIDE
     Indication: Product used for unknown indication
     Dosage: UNK UNK, Q8H
     Route: 065
  4. MYDRIACYL [Concomitant]
     Active Substance: TROPICAMIDE
     Dosage: 1 DRP, Q12H (ONE DROP IN THE RIGHT)
     Route: 047
     Dates: start: 20211021
  5. HYALURONATE SODIUM [Concomitant]
     Active Substance: HYALURONATE SODIUM
     Indication: Eye lubrication therapy
     Dosage: 1 DRP, Q3H (RIGHT EYE)
     Route: 047
     Dates: start: 20211021
  6. PERIDAL [Concomitant]
     Indication: Product used for unknown indication
     Dosage: 1 DOSAGE FORM (STARTED MORE THAN 10 YEARS AGO, BY THE MORNING)
     Route: 048
  7. ATACAND [Concomitant]
     Active Substance: CANDESARTAN CILEXETIL
     Indication: Product used for unknown indication
     Dosage: 1 DOSAGE FORM (STARTED MORE THAN 10 YEARS AGO, BY THE MORNING)
     Route: 048
  8. RIFAMPIN [Concomitant]
     Active Substance: RIFAMPIN
     Indication: Product used for unknown indication
     Dosage: 1 DOSAGE FORM (STARTED MORE THAN 10 YEARS AGO, BY THE MORNING)
     Route: 048
  9. EXODUS [Concomitant]
     Indication: Product used for unknown indication
     Dosage: 1 DOSAGE FORM (STARTED MORE THAN 10 YEARS AGO, BY THE MORNING)
     Route: 048
  10. ASPIRIN [Concomitant]
     Active Substance: ASPIRIN
     Indication: Product used for unknown indication
     Dosage: 1 DOSAGE FORM (STARTED MORE THAN 10 YEARS AGO, BY THE MORNING)
     Route: 048
  11. PERIVASC [Concomitant]
     Indication: Product used for unknown indication
     Dosage: 1 DOSAGE FORM (STARTED MORE THAN 10 YEARS AGO, BY THE MORNING)
     Route: 048
  12. PROPRANOLOL HYDROCHLORIDE [Concomitant]
     Active Substance: PROPRANOLOL HYDROCHLORIDE
     Indication: Product used for unknown indication
     Dosage: 1 DOSAGE FORM (STARTED MORE THAN 10 YEARS AGO, BY THE MORNING)
     Route: 065

REACTIONS (10)
  - Cataract [Unknown]
  - Intra-ocular injection complication [Recovered/Resolved]
  - Ocular hyperaemia [Recovered/Resolved]
  - Visual impairment [Recovered/Resolved]
  - Eye irritation [Unknown]
  - Eye pain [Recovered/Resolved]
  - Vision blurred [Unknown]
  - Visual impairment [Recovered/Resolved]
  - Eye pain [Recovered/Resolved]
  - Eye pain [Recovered/Resolved]

NARRATIVE: CASE EVENT DATE: 20211021
